FAERS Safety Report 9684055 (Version 1)
Quarter: 2013Q4

REPORT INFORMATION
  Report Type: Spontaneous
  Country: US (occurrence: US)
  Receive Date: 20131112
  Receipt Date: 20131112
  Transmission Date: 20140711
  Serious: Yes (Hospitalization)
  Sender: FDA-Public Use
  Company Number: US-JNJFOC-20131101795

PATIENT
  Sex: Female
  Weight: 113.4 kg

DRUGS (13)
  1. REMICADE [Suspect]
     Indication: CROHN^S DISEASE
     Dosage: 1990 OR 1991
     Route: 042
  2. REMICADE [Suspect]
     Indication: CROHN^S DISEASE
     Route: 042
     Dates: start: 201009
  3. REMICADE [Suspect]
     Indication: CROHN^S DISEASE
     Route: 042
     Dates: start: 2010, end: 2010
  4. JANUVIA [Concomitant]
     Indication: DIABETES MELLITUS
     Route: 048
     Dates: start: 2010
  5. ALLOPURINOL [Concomitant]
     Indication: GOUT
     Route: 048
     Dates: start: 2011
  6. ALLOPURINOL [Concomitant]
     Indication: NEPHROLITHIASIS
     Route: 048
     Dates: start: 2011
  7. GLIPIZIDE [Concomitant]
     Indication: DIABETES MELLITUS
     Route: 048
  8. APRISO [Concomitant]
     Indication: CROHN^S DISEASE
     Route: 048
  9. VITAMIN B12 [Concomitant]
     Indication: MALABSORPTION
     Route: 065
  10. PROCRIT [Concomitant]
     Indication: ANAEMIA
     Route: 058
  11. IRON [Concomitant]
     Indication: ANAEMIA
     Route: 048
  12. LACTOBACILLUS ACIDOPHILUS [Concomitant]
     Route: 048
  13. VITAMIN B12 [Concomitant]
     Route: 060

REACTIONS (6)
  - Diabetes mellitus [Not Recovered/Not Resolved]
  - Adverse event [Unknown]
  - Coma [Recovered/Resolved]
  - Nephrolithiasis [Not Recovered/Not Resolved]
  - Infusion related reaction [Unknown]
  - Somnolence [Recovered/Resolved]
